FAERS Safety Report 20364923 (Version 1)
Quarter: 2022Q1

REPORT INFORMATION
  Report Type: Spontaneous
  Country: US (occurrence: US)
  Receive Date: 20220122
  Receipt Date: 20220122
  Transmission Date: 20220423
  Serious: Yes (Death)
  Sender: FDA-Public Use
  Company Number: US-SPECGX-T202103739

PATIENT
  Age: 16 Month
  Sex: Male

DRUGS (1)
  1. MORPHINE [Suspect]
     Active Substance: MORPHINE
     Indication: Product used for unknown indication
     Dosage: UNK
     Route: 051

REACTIONS (3)
  - Medication error [Fatal]
  - Incorrect route of product administration [Fatal]
  - Product use issue [Fatal]

NARRATIVE: CASE EVENT DATE: 20200101
